FAERS Safety Report 5166777-5 (Version None)
Quarter: 2006Q4

REPORT INFORMATION
  Report Type: 
  Country: None (occurrence: None)
  Receive Date: 20061129
  Receipt Date: 20061116
  Transmission Date: 20070319
  Serious: Yes (Hospitalization)
  Sender: FDA-Public Use
  Company Number: 062-C5013-06110787

PATIENT
  Age: 68 Year
  Sex: Female
  Weight: 49 kg

DRUGS (8)
  1. REVLIMID [Suspect]
     Indication: MULTIPLE MYELOMA
     Dosage: 25 MG, 1 IN 1 D, ORAL
     Route: 048
     Dates: start: 20061029, end: 20061109
  2. DEXAMETHASONE TAB [Suspect]
     Indication: DRUG USE FOR UNKNOWN INDICATION
     Dosage: 8 MG
     Dates: start: 20061001, end: 20061101
  3. METOPROLOL SUCCINATE [Suspect]
     Indication: DRUG USE FOR UNKNOWN INDICATION
     Dosage: 42.5 MG
     Dates: start: 20050101
  4. GLIMEPIRIDE [Suspect]
     Indication: DRUG USE FOR UNKNOWN INDICATION
     Dosage: 2 MG
     Dates: start: 20050101
  5. PANTOPRAZOLE SODIUM [Suspect]
     Indication: DRUG USE FOR UNKNOWN INDICATION
     Dosage: 40 MG
     Dates: start: 20050101
  6. TAVANIC (LEVLFLOXACIN) [Suspect]
     Indication: DRUG USE FOR UNKNOWN INDICATION
     Dosage: 500 MG
     Dates: start: 20050101
  7. ACYCLOVIR [Suspect]
     Indication: DRUG USE FOR UNKNOWN INDICATION
     Dosage: 200 MG
     Dates: start: 20050101
  8. DIFLUCAN [Concomitant]

REACTIONS (5)
  - CEREBRAL ISCHAEMIA [None]
  - CONSTIPATION [None]
  - DIARRHOEA [None]
  - METABOLIC ACIDOSIS [None]
  - THROMBOCYTOPENIA [None]
